FAERS Safety Report 5237411-0 (Version None)
Quarter: 2007Q1

REPORT INFORMATION
  Report Type: 
  Country: None (occurrence: None)
  Receive Date: 20070213
  Receipt Date: 20070208
  Transmission Date: 20070707
  Serious: Yes (Hospitalization)
  Sender: FDA-Public Use
  Company Number: GB-ROXANE LABORATORIES, INC-2007-UK-00496UK

PATIENT
  Age: 37 Year
  Sex: Female

DRUGS (5)
  1. PRAMIPEXOLE DIHYDROCHLORIDE [Suspect]
  2. MIRTAZAPINE [Suspect]
  3. AMANTADINE HCL [Concomitant]
  4. FRUSEMIDE [Concomitant]
  5. TIZANIDINE HCL [Concomitant]

REACTIONS (1)
  - PSYCHOTIC DISORDER [None]
